FAERS Safety Report 8828365 (Version 1)
Quarter: 2012Q4

REPORT INFORMATION
  Report Type: 
  Country: US (occurrence: US)
  Receive Date: 20121005
  Receipt Date: 20121005
  Transmission Date: 20130627
  Serious: Yes (Other)
  Sender: FDA-Public Use
  Company Number: US-ELI_LILLY_AND_COMPANY-US201209007982

PATIENT
  Sex: Female

DRUGS (2)
  1. HUMALOG 25% LISPRO, 75% NPL [Suspect]
     Indication: TYPE 2 DIABETES MELLITUS
     Dosage: 3 u, tid
  2. LANTUS [Concomitant]
     Dosage: UNK, each evening

REACTIONS (4)
  - Renal failure [Not Recovered/Not Resolved]
  - Eye disorder [Not Recovered/Not Resolved]
  - Cataract operation [Recovered/Resolved]
  - Visual acuity reduced [Not Recovered/Not Resolved]
